FAERS Safety Report 15832737 (Version 1)
Quarter: 2019Q1

REPORT INFORMATION
  Report Type: Spontaneous
  Country: US (occurrence: US)
  Receive Date: 20190116
  Receipt Date: 20190116
  Transmission Date: 20190417
  Serious: No
  Sender: FDA-Public Use
  Company Number: US-EMD SERONO-9063823

PATIENT
  Age: 57 Year
  Sex: Female

DRUGS (1)
  1. REBIF [Suspect]
     Active Substance: INTERFERON BETA-1A
     Indication: MULTIPLE SCLEROSIS
     Dosage: 0.5 MILLILITER
     Route: 058
     Dates: start: 20181219

REACTIONS (3)
  - Cough [Recovering/Resolving]
  - Chills [Recovering/Resolving]
  - Aphonia [Recovering/Resolving]

NARRATIVE: CASE EVENT DATE: 20190101
